FAERS Safety Report 9423090 (Version 3)
Quarter: 2013Q3

REPORT INFORMATION
  Report Type: Spontaneous
  Country: KR (occurrence: KR)
  Receive Date: 20130726
  Receipt Date: 20130814
  Transmission Date: 20140515
  Serious: Yes (Life-Threatening, Other)
  Sender: FDA-Public Use
  Company Number: KR-PFIZER INC-2013217681

PATIENT
  Age: 60 Year
  Sex: Male

DRUGS (2)
  1. SUTENE [Suspect]
     Indication: METASTATIC RENAL CELL CARCINOMA
     Dosage: 50 MG, 1X/DAY
  2. SUTENE [Suspect]
     Dosage: 37.5 MG, 1X/DAY

REACTIONS (1)
  - Stevens-Johnson syndrome [Recovered/Resolved]
